FAERS Safety Report 4612322-X (Version None)
Quarter: 2005Q2

REPORT INFORMATION
  Report Type: 
  Country: None (occurrence: None)
  Receive Date: 20050308
  Receipt Date: 20041104
  Transmission Date: 20051028
  Serious: Yes (Other)
  Sender: FDA-Public Use
  Company Number: 2004UW22799

PATIENT
  Age: 57 Year
  Sex: Male
  Weight: 117.93 kg

DRUGS (4)
  1. CRESTOR [Suspect]
     Indication: BLOOD CHOLESTEROL INCREASED
     Dosage: 10 MG DAILY PO
     Route: 048
     Dates: start: 20040901
  2. MULTI-VITAMINS [Concomitant]
  3. L-THYROXINE [Concomitant]
  4. LOTREL [Concomitant]

REACTIONS (3)
  - SENSITIVITY OF TEETH [None]
  - TOOTHACHE [None]
  - VISUAL DISTURBANCE [None]
